FAERS Safety Report 8296412-9 (Version None)
Quarter: 2012Q2

REPORT INFORMATION
  Report Type: 
  Country: None (occurrence: None)
  Receive Date: 20120418
  Receipt Date: 20120330
  Transmission Date: 20120825
  Serious: Yes (Hospitalization, Congenital Anomaly)
  Sender: FDA-Public Use
  Company Number: US-ROCHE-1053122

PATIENT
  Age: 12 Month
  Sex: Male

DRUGS (4)
  1. PREVACID [Concomitant]
     Route: 048
  2. OMALIZUMAB [Suspect]
     Indication: PRODUCT USED FOR UNKNOWN INDICATION
     Route: 064
  3. OMALIZUMAB [Suspect]
     Route: 063
  4. MIRALAX [Concomitant]
     Indication: CONSTIPATION
     Route: 048

REACTIONS (3)
  - BRONCHIOLITIS [None]
  - LARYNGEAL CLEFT [None]
  - MATERNAL EXPOSURE TIMING UNSPECIFIED [None]
